FAERS Safety Report 19773515 (Version 1)
Quarter: 2021Q3

REPORT INFORMATION
  Report Type: Spontaneous
  Country: TH (occurrence: TH)
  Receive Date: 20210901
  Receipt Date: 20210901
  Transmission Date: 20211014
  Serious: Yes (Hospitalization, Other)
  Sender: FDA-Public Use
  Company Number: TH-BION-010012

PATIENT
  Age: 40 Year
  Sex: Male

DRUGS (1)
  1. AMPHETAMINE SULFATE. [Suspect]
     Active Substance: AMPHETAMINE SULFATE
     Dosage: INCREASED THE CONSUMPTION FROM ONCE A MONTH TO EVERY OTHER DAY

REACTIONS (4)
  - Carotid artery dissection [Recovering/Resolving]
  - Vertebral artery dissection [Recovering/Resolving]
  - Drug abuse [Unknown]
  - Cerebrovascular accident [Recovering/Resolving]
